FAERS Safety Report 9197331 (Version 1)
Quarter: 2013Q1

REPORT INFORMATION
  Report Type: Spontaneous
  Country: US (occurrence: US)
  Receive Date: 20130328
  Receipt Date: 20130328
  Transmission Date: 20140127
  Serious: Yes (Hospitalization)
  Sender: FDA-Public Use
  Company Number: US-GLAXOSMITHKLINE-A0718169A

PATIENT
  Age: 78 Year
  Sex: Female
  Weight: 63.6 kg

DRUGS (4)
  1. AVANDIA [Suspect]
     Indication: TYPE 2 DIABETES MELLITUS
     Dosage: 4MG PER DAY
     Route: 048
     Dates: start: 200605, end: 200708
  2. AMARYL [Concomitant]
  3. LIPITOR [Concomitant]
  4. CENTRUM [Concomitant]

REACTIONS (3)
  - Myocardial infarction [Not Recovered/Not Resolved]
  - Acute coronary syndrome [Unknown]
  - Heart injury [Unknown]
